FAERS Safety Report 5080107-9 (Version None)
Quarter: 2006Q3

REPORT INFORMATION
  Report Type: 
  Country: None (occurrence: None)
  Receive Date: 20060815
  Receipt Date: 20060420
  Transmission Date: 20061208
  Serious: Yes (Hospitalization)
  Sender: FDA-Public Use
  Company Number: 2006UW07173

PATIENT
  Age: 63 Year
  Sex: Female

DRUGS (5)
  1. SYMBICORT PMDI [Suspect]
     Indication: CHRONIC OBSTRUCTIVE PULMONARY DISEASE
     Dosage: 80/4.5 ?G X 2 ACTUATIONS
     Route: 055
     Dates: start: 20051227
  2. PLACEBO [Suspect]
     Indication: CHRONIC OBSTRUCTIVE PULMONARY DISEASE
     Route: 055
     Dates: start: 20051227
  3. ALBUTEROL [Concomitant]
     Indication: CHRONIC OBSTRUCTIVE PULMONARY DISEASE
     Route: 055
     Dates: start: 20050201, end: 20051226
  4. ALBUTEROL [Concomitant]
     Route: 055
     Dates: start: 20051228, end: 20060704
  5. LYRICA [Concomitant]
     Indication: BACK PAIN
     Route: 048
     Dates: start: 20051121

REACTIONS (11)
  - BLOOD PH INCREASED [None]
  - BLOOD POTASSIUM DECREASED [None]
  - BODY TEMPERATURE INCREASED [None]
  - BRONCHITIS [None]
  - CARBON DIOXIDE INCREASED [None]
  - CARDIOMEGALY [None]
  - CHRONIC OBSTRUCTIVE PULMONARY DISEASE [None]
  - PCO2 INCREASED [None]
  - PO2 DECREASED [None]
  - PRODUCTIVE COUGH [None]
  - SPUTUM DISCOLOURED [None]
